FAERS Safety Report 22137573 (Version 1)
Quarter: 2023Q1

REPORT INFORMATION
  Report Type: Spontaneous
  Country: CA (occurrence: CA)
  Receive Date: 20230325
  Receipt Date: 20230325
  Transmission Date: 20230417
  Serious: Yes (Death, Hospitalization)
  Sender: FDA-Public Use
  Company Number: CA-FreseniusKabi-FK202303689

PATIENT
  Age: 53 Year
  Sex: Female
  Weight: 41 kg

DRUGS (1)
  1. PIPERACILLIN SODIUM\TAZOBACTAM SODIUM [Suspect]
     Active Substance: PIPERACILLIN SODIUM\TAZOBACTAM SODIUM
     Indication: Product used for unknown indication
     Route: 042

REACTIONS (4)
  - Hypertransaminasaemia [Fatal]
  - Clostridium difficile infection [Fatal]
  - Streptococcal bacteraemia [Fatal]
  - Neutropenia [Fatal]
